FAERS Safety Report 7579091-5 (Version None)
Quarter: 2011Q2

REPORT INFORMATION
  Report Type: 
  Country: None (occurrence: None)
  Receive Date: 20110628
  Receipt Date: 20100805
  Transmission Date: 20111010
  Serious: Yes (Other)
  Sender: FDA-Public Use
  Company Number: US-BAYER-201029898NA

PATIENT
  Sex: Female

DRUGS (8)
  1. ZITHROMAX [Concomitant]
  2. CIPROFLOXACIN HCL [Suspect]
     Indication: SINUSITIS
     Dosage: 1 TABLET IN THE MORNING AND 1 TABLET IN THE EVENING.
     Route: 048
     Dates: start: 20040101
  3. DECONGESTANTS AND ANTIALLERGICS [Concomitant]
  4. AVELOX [Suspect]
     Indication: PRODUCT USED FOR UNKNOWN INDICATION
  5. ANTIDEPRESSANTS [Concomitant]
  6. PREDNISONE [Concomitant]
  7. MECLIZINE [Concomitant]
  8. AUGMENTIN '125' [Concomitant]

REACTIONS (4)
  - HALLUCINATION [None]
  - SWELLING FACE [None]
  - PARAESTHESIA [None]
  - PRURITUS [None]
